FAERS Safety Report 15391786 (Version 5)
Quarter: 2022Q2

REPORT INFORMATION
  Report Type: Report from Study
  Country: GB (occurrence: GB)
  Receive Date: 20180917
  Receipt Date: 20220527
  Transmission Date: 20220721
  Serious: Yes (Life-Threatening, Hospitalization, Other)
  Sender: FDA-Public Use
  Company Number: GB-CELGENE-GBR-20180807474

PATIENT

DRUGS (5)
  1. DEXAMETHASONE [Suspect]
     Active Substance: DEXAMETHASONE
     Indication: Plasma cell myeloma
     Dosage: 40 MG
     Route: 065
     Dates: start: 20170808, end: 20170829
  2. DEXAMETHASONE [Suspect]
     Active Substance: DEXAMETHASONE
     Dosage: 2 MG
     Route: 065
     Dates: start: 20180605, end: 20180612
  3. DEXAMETHASONE [Suspect]
     Active Substance: DEXAMETHASONE
     Dosage: 6 MG
     Route: 065
     Dates: start: 20180522, end: 20180529
  4. DEXAMETHASONE [Suspect]
     Active Substance: DEXAMETHASONE
     Dosage: UNK FREQUENCY TEXT: NOT PROVIDEDDURATION TEXT : CYCLE
     Route: 065
     Dates: start: 20180515
  5. POMALIDOMIDE [Suspect]
     Active Substance: POMALIDOMIDE
     Indication: Plasma cell myeloma
     Dosage: 4 MG, WEEKLY
     Route: 048
     Dates: start: 20170808, end: 20170828

REACTIONS (7)
  - Pneumonia [Recovered/Resolved]
  - Device related infection [Recovered/Resolved]
  - Endocarditis [Recovered/Resolved]
  - Cardiac arrest [Recovered/Resolved]
  - Septic embolus [Recovered/Resolved]
  - Pleuritic pain [Recovered/Resolved]
  - Decubitus ulcer [Recovered/Resolved]

NARRATIVE: CASE EVENT DATE: 20180603
